FAERS Safety Report 6509992-8 (Version None)
Quarter: 2009Q4

REPORT INFORMATION
  Report Type: 
  Country: None (occurrence: None)
  Receive Date: 20091222
  Receipt Date: 20091120
  Transmission Date: 20100525
  Serious: No
  Sender: FDA-Public Use
  Company Number: US-BAYER-200917078BCC

PATIENT
  Age: 46 Year
  Sex: Female
  Weight: 68 kg

DRUGS (1)
  1. FINACEA [Suspect]
     Indication: ACNE
     Route: 061
     Dates: start: 20090925, end: 20091001

REACTIONS (3)
  - BURNING SENSATION [None]
  - PRURITUS [None]
  - URTICARIA [None]
